FAERS Safety Report 20899121 (Version 1)
Quarter: 2022Q2

REPORT INFORMATION
  Report Type: Spontaneous
  Country: GB (occurrence: GB)
  Receive Date: 20220601
  Receipt Date: 20220601
  Transmission Date: 20220721
  Serious: Yes (Hospitalization, Other)
  Sender: FDA-Public Use
  Company Number: None

PATIENT

DRUGS (2)
  1. PREDNISOLONE [Suspect]
     Active Substance: PREDNISOLONE
     Dosage: UNK (ORAL SOLUTION)
  2. PFIZER-BIONTECH COVID-19 VACCINE [Suspect]
     Active Substance: TOZINAMERAN
     Dosage: DOSE 2
     Dates: start: 20220308

REACTIONS (3)
  - Lymphadenopathy [Recovered/Resolved]
  - Tumour lysis syndrome [Recovered/Resolved]
  - Ocular vasculitis [Recovering/Resolving]

NARRATIVE: CASE EVENT DATE: 20220315
